FAERS Safety Report 16295312 (Version 2)
Quarter: 2019Q2

REPORT INFORMATION
  Report Type: Report from Study
  Country: US (occurrence: US)
  Receive Date: 20190509
  Receipt Date: 20190523
  Transmission Date: 20190711
  Serious: Yes (Death)
  Sender: FDA-Public Use
  Company Number: US-BIOGEN-2019BI00733849

PATIENT
  Sex: Male

DRUGS (1)
  1. TECFIDERA [Suspect]
     Active Substance: DIMETHYL FUMARATE
     Indication: MULTIPLE SCLEROSIS
     Dosage: MAINTENANCE DOSE
     Route: 048
     Dates: start: 20151202

REACTIONS (5)
  - End stage renal disease [Fatal]
  - Peripheral vascular disorder [Fatal]
  - Skin wound [Fatal]
  - Duodenal ulcer perforation [Fatal]
  - Chronic obstructive pulmonary disease [Fatal]
